FAERS Safety Report 4506831-1 (Version None)
Quarter: 2004Q4

REPORT INFORMATION
  Report Type: 
  Country: None (occurrence: None)
  Receive Date: 20041122
  Receipt Date: 20041111
  Transmission Date: 20050328
  Serious: Yes (Hospitalization)
  Sender: FDA-Public Use
  Company Number: 4722

PATIENT
  Age: 4 Year
  Sex: Male

DRUGS (2)
  1. HYCAMTIN [Suspect]
     Indication: RHABDOMYOSARCOMA
     Dosage: 1.5MGM2 PER DAY
     Route: 042
     Dates: start: 20041105
  2. ONCOVIN [Suspect]
     Indication: DRUG USE FOR UNKNOWN INDICATION
     Route: 065

REACTIONS (1)
  - GASTROINTESTINAL HAEMORRHAGE [None]
